FAERS Safety Report 8276292-8 (Version None)
Quarter: 2012Q2

REPORT INFORMATION
  Report Type: 
  Country: None (occurrence: None)
  Receive Date: 20120412
  Receipt Date: 20120409
  Transmission Date: 20120825
  Serious: Yes (Death)
  Sender: FDA-Public Use
  Company Number: PHHY2012MX027463

PATIENT
  Sex: Male
  Weight: 54 kg

DRUGS (2)
  1. GLEEVEC [Suspect]
     Indication: CHRONIC MYELOID LEUKAEMIA
     Dosage: 400 MG
  2. GLEEVEC [Suspect]
     Dosage: 800 MG

REACTIONS (1)
  - CHRONIC MYELOID LEUKAEMIA [None]
